FAERS Safety Report 5489604-5 (Version None)
Quarter: 2007Q4

REPORT INFORMATION
  Report Type: 
  Country: None (occurrence: None)
  Receive Date: 20071009
  Receipt Date: 20070830
  Transmission Date: 20080405
  Serious: Yes (Hospitalization)
  Sender: FDA-Public Use
  Company Number: US-JNJFOC-20070900084

PATIENT
  Age: 23 Year
  Sex: Male

DRUGS (1)
  1. ULTRAM ER [Suspect]
     Indication: BACK PAIN
     Dosage: 200 MG, 1 IN 1 DAY, ORAL
     Route: 048
     Dates: start: 20070101, end: 20070101

REACTIONS (3)
  - LOSS OF CONSCIOUSNESS [None]
  - SWOLLEN TONGUE [None]
  - VOMITING [None]
